FAERS Safety Report 7934240-1 (Version None)
Quarter: 2011Q4

REPORT INFORMATION
  Report Type: 
  Country: None (occurrence: None)
  Receive Date: 20111122
  Receipt Date: 20110825
  Transmission Date: 20120403
  Serious: No
  Sender: FDA-Public Use
  Company Number: US-BAYER-2011-082071

PATIENT
  Age: 71 Year
  Sex: Male
  Weight: 91 kg

DRUGS (4)
  1. UNKNOWN [Concomitant]
  2. ALEVE (CAPLET) [Suspect]
     Indication: ANALGESIC THERAPY
     Dosage: UNK, QD
     Route: 048
     Dates: start: 20110101
  3. ASPIRIN [Concomitant]
  4. UNKNOWN [Concomitant]

REACTIONS (1)
  - NO ADVERSE EVENT [None]
